FAERS Safety Report 5394560-4 (Version None)
Quarter: 2007Q3

REPORT INFORMATION
  Report Type: 
  Country: None (occurrence: None)
  Receive Date: 20070723
  Receipt Date: 20070711
  Transmission Date: 20080115
  Serious: Yes (Other)
  Sender: FDA-Public Use
  Company Number: US-BOEHRINGER INGELHEIM PHARMACEUTICALS, INC.-2007-BP-17750PF

PATIENT
  Sex: Female
  Weight: 98 kg

DRUGS (13)
  1. SPIRIVA [Suspect]
     Indication: ASTHMA
     Route: 055
     Dates: start: 20070101, end: 20070101
  2. CHANTIX [Suspect]
     Indication: SMOKING CESSATION THERAPY
     Route: 048
     Dates: start: 20070603
  3. NORVASC [Concomitant]
     Indication: HYPERTENSION
     Route: 048
     Dates: start: 20070101
  4. ATENOLOL [Concomitant]
     Indication: HYPERTENSION
     Dates: start: 20070101
  5. BENICAR [Concomitant]
  6. GLYBURIDE [Concomitant]
  7. HYDROCHLOTHIAZIDE [Concomitant]
  8. CELEBREX [Concomitant]
  9. AVANDIA [Concomitant]
  10. METFORMIN HCL [Concomitant]
  11. ZOCOR [Concomitant]
  12. VITAMIN E [Concomitant]
  13. FOSAMAX [Concomitant]
     Indication: OSTEOPOROSIS

REACTIONS (12)
  - ABDOMINAL DISTENSION [None]
  - ABNORMAL DREAMS [None]
  - BLOOD GLUCOSE ABNORMAL [None]
  - CARDIAC FAILURE CONGESTIVE [None]
  - CHEST PAIN [None]
  - CONSTIPATION [None]
  - DYSPNOEA [None]
  - FEELING ABNORMAL [None]
  - INITIAL INSOMNIA [None]
  - INSOMNIA [None]
  - NAUSEA [None]
  - OEDEMA PERIPHERAL [None]
